FAERS Safety Report 15525572 (Version 2)
Quarter: 2019Q1

REPORT INFORMATION
  Report Type: Spontaneous
  Country: GB (occurrence: GB)
  Receive Date: 20181018
  Receipt Date: 20190111
  Transmission Date: 20190417
  Serious: Yes (Hospitalization)
  Sender: FDA-Public Use
  Company Number: GB-CONCORDIA PHARMACEUTICALS INC.-E2B_00016927

PATIENT
  Age: 82 Year
  Sex: Female

DRUGS (8)
  1. DIGOXIN. [Suspect]
     Active Substance: DIGOXIN
     Indication: ATRIAL FIBRILLATION
     Dosage: EVERY MORNING
     Route: 048
     Dates: end: 20180913
  2. PARACETAMOL [Concomitant]
     Active Substance: ACETAMINOPHEN
  3. FUROSEMIDE. [Concomitant]
     Active Substance: FUROSEMIDE
     Dosage: DOSE REDUCED
     Dates: end: 20180919
  4. ALGESAL [Concomitant]
     Active Substance: DIETHYLAMINE SALICYLATE
  5. ATORVASTATIN [Concomitant]
     Active Substance: ATORVASTATIN
     Dates: end: 20180919
  6. BISOPROLOL [Suspect]
     Active Substance: BISOPROLOL
     Indication: ATRIAL FIBRILLATION
     Dosage: EVERY MORNING
     Route: 048
     Dates: end: 20180912
  7. OMEPRAZOLE. [Concomitant]
     Active Substance: OMEPRAZOLE
     Dates: end: 20180919
  8. WARFARIN [Concomitant]
     Active Substance: WARFARIN
     Dates: end: 20180919

REACTIONS (7)
  - Loss of consciousness [Recovered/Resolved]
  - Bradycardia [Recovered/Resolved with Sequelae]
  - Atrioventricular block complete [Unknown]
  - Acute kidney injury [Unknown]
  - Pulmonary oedema [Unknown]
  - Lower respiratory tract infection [Unknown]
  - Hypotension [Unknown]

NARRATIVE: CASE EVENT DATE: 20180912
